FAERS Safety Report 7535407-7 (Version None)
Quarter: 2011Q2

REPORT INFORMATION
  Report Type: 
  Country: None (occurrence: None)
  Receive Date: 20110609
  Receipt Date: 20110603
  Transmission Date: 20111010
  Serious: Yes (Hospitalization)
  Sender: FDA-Public Use
  Company Number: JP-BRISTOL-MYERS SQUIBB COMPANY-15322845

PATIENT
  Age: 61 Year
  Sex: Male

DRUGS (3)
  1. STEROIDS [Suspect]
     Indication: HISTIOCYTOSIS HAEMATOPHAGIC
  2. VEPESID [Suspect]
     Indication: HISTIOCYTOSIS HAEMATOPHAGIC
  3. ONCOVIN [Suspect]
     Indication: HISTIOCYTOSIS HAEMATOPHAGIC
     Dosage: INJECTION

REACTIONS (1)
  - DISSEMINATED TUBERCULOSIS [None]
